FAERS Safety Report 10075898 (Version 1)
Quarter: 2014Q2

REPORT INFORMATION
  Report Type: Spontaneous
  Country: US (occurrence: GB)
  Receive Date: 20140414
  Receipt Date: 20140414
  Transmission Date: 20141212
  Serious: Yes (Other)
  Sender: FDA-Public Use
  Company Number: US-ELI_LILLY_AND_COMPANY-GB201403007344

PATIENT
  Age: 21 Year
  Sex: Female

DRUGS (2)
  1. PROZAC [Suspect]
     Indication: DEPRESSION
     Dosage: 20 MG, QD
     Route: 048
  2. PROZAC [Suspect]
     Indication: OBSESSIVE THOUGHTS
     Dosage: 40 MG, QD
     Route: 065

REACTIONS (2)
  - Sedation [Unknown]
  - Drug ineffective [Not Recovered/Not Resolved]
